FAERS Safety Report 10191393 (Version 3)
Quarter: 2014Q3

REPORT INFORMATION
  Report Type: Spontaneous
  Country: IT (occurrence: IT)
  Receive Date: 20140523
  Receipt Date: 20140925
  Transmission Date: 20150326
  Serious: Yes (Hospitalization)
  Sender: FDA-Public Use
  Company Number: IT-009507513-1405ITA009687

PATIENT
  Age: 53 Year
  Sex: Male
  Weight: 125 kg

DRUGS (3)
  1. GLICLAZIDE [Concomitant]
     Active Substance: GLICLAZIDE
     Indication: DIABETES MELLITUS
     Dosage: 30 MG, UNK
     Route: 048
     Dates: start: 20140101, end: 20140423
  2. INEGY 10MG/40MG COMPRESSE [Suspect]
     Active Substance: EZETIMIBE\SIMVASTATIN
     Indication: DYSLIPIDAEMIA
     Dosage: 10MG+40MG, DAILY
     Route: 048
     Dates: start: 20140318, end: 20140417
  3. FUROSEMIDE. [Concomitant]
     Active Substance: FUROSEMIDE
     Indication: CARDIAC FAILURE
     Dosage: UNK

REACTIONS (5)
  - Renal failure acute [Recovering/Resolving]
  - International normalised ratio increased [None]
  - Hypoglycaemia [None]
  - Hepatitis acute [Recovering/Resolving]
  - Myalgia [Recovering/Resolving]

NARRATIVE: CASE EVENT DATE: 20140417
